FAERS Safety Report 17587079 (Version 2)
Quarter: 2020Q1

REPORT INFORMATION
  Report Type: Report from Study
  Country: CA (occurrence: CA)
  Receive Date: 20200326
  Receipt Date: 20200326
  Transmission Date: 20200409
  Serious: Yes (Other)
  Sender: FDA-Public Use
  Company Number: CA-JNJFOC-20200330852

PATIENT
  Sex: Male

DRUGS (1)
  1. STELARA [Suspect]
     Active Substance: USTEKINUMAB
     Indication: ANKYLOSING SPONDYLITIS
     Route: 058

REACTIONS (5)
  - Nausea [Recovering/Resolving]
  - Product use in unapproved indication [Unknown]
  - Ankylosing spondylitis [Recovering/Resolving]
  - Insomnia [Recovering/Resolving]
  - Off label use [Unknown]
